FAERS Safety Report 5139269-7 (Version None)
Quarter: 2006Q4

REPORT INFORMATION
  Report Type: 
  Country: None (occurrence: None)
  Receive Date: 20061030
  Receipt Date: 20061011
  Transmission Date: 20070319
  Serious: Yes (Other)
  Sender: FDA-Public Use
  Company Number: JP-BRISTOL-MYERS SQUIBB COMPANY-13542329

PATIENT
  Age: 29 Year
  Sex: Male

DRUGS (10)
  1. ENDOXAN [Suspect]
     Indication: RENAL TRANSPLANT
     Route: 048
     Dates: start: 20051004, end: 20051103
  2. BACTRIM [Suspect]
     Indication: RENAL TRANSPLANT
     Route: 048
     Dates: start: 20051015, end: 20060413
  3. PREDNISOLONE [Suspect]
     Indication: RENAL TRANSPLANT
     Route: 048
     Dates: start: 20051004
  4. LANSOPRAZOLE [Suspect]
     Indication: RENAL TRANSPLANT
     Route: 048
     Dates: start: 20051004, end: 20051103
  5. ISCOTIN [Suspect]
     Indication: RENAL TRANSPLANT
     Route: 048
     Dates: start: 20051015, end: 20051106
  6. PYDOXAL [Suspect]
     Indication: RENAL TRANSPLANT
     Route: 048
     Dates: start: 20051015, end: 20051106
  7. ZOVIRAX [Suspect]
     Indication: RENAL TRANSPLANT
     Route: 048
     Dates: start: 20051015, end: 20051106
  8. SELBEX [Suspect]
     Indication: RENAL TRANSPLANT
     Route: 048
     Dates: start: 20051015, end: 20051108
  9. NEORAL [Suspect]
     Indication: RENAL TRANSPLANT
     Route: 048
     Dates: start: 20051012
  10. SIMULECT [Suspect]
     Indication: RENAL TRANSPLANT
     Route: 041
     Dates: start: 20051014, end: 20051018

REACTIONS (5)
  - HEPATITIS [None]
  - RENAL FAILURE [None]
  - RENAL HAEMATOMA [None]
  - RENAL TUBULAR NECROSIS [None]
  - TRANSPLANT REJECTION [None]
